FAERS Safety Report 15326053 (Version 1)
Quarter: 2018Q3

REPORT INFORMATION
  Report Type: Spontaneous
  Country: US (occurrence: US)
  Receive Date: 20180823
  Receipt Date: 20180823
  Transmission Date: 20181010
  Serious: Yes (Death)
  Sender: FDA-Public Use
  Company Number: None

PATIENT
  Age: 81 Year
  Sex: Male
  Weight: 74.25 kg

DRUGS (2)
  1. MULTI VITAMIN [Concomitant]
     Active Substance: VITAMINS
  2. VALSARTAN. [Suspect]
     Active Substance: VALSARTAN
     Indication: HYPERTENSION
     Dosage: ?          QUANTITY:1 TABLET(S);?
     Route: 048
     Dates: start: 20060201, end: 20180510

REACTIONS (7)
  - Lung disorder [None]
  - General physical health deterioration [None]
  - Weight decreased [None]
  - Terminal state [None]
  - Malaise [None]
  - Pneumonia [None]
  - Liver disorder [None]

NARRATIVE: CASE EVENT DATE: 20180201
